FAERS Safety Report 8314073-7 (Version None)
Quarter: 2012Q2

REPORT INFORMATION
  Report Type: 
  Country: None (occurrence: None)
  Receive Date: 20120426
  Receipt Date: 20120412
  Transmission Date: 20120825
  Serious: Yes (Other)
  Sender: FDA-Public Use
  Company Number: GB-RANBAXY-2012R1-53857

PATIENT
  Age: 71 Year
  Sex: Female

DRUGS (14)
  1. CIPROFLOXACIN [Suspect]
     Dosage: 600 MG, BID
     Route: 041
     Dates: start: 20120111, end: 20120206
  2. NITROFURANTOIN [Concomitant]
     Indication: URINARY TRACT INFECTION
     Dosage: UNK
     Route: 065
  3. MAGNESIUM SULFATE [Concomitant]
     Indication: HYPOMAGNESAEMIA
     Dosage: UNK
     Route: 041
     Dates: start: 20120107, end: 20120128
  4. ATORVASTATIN [Concomitant]
     Indication: PRODUCT USED FOR UNKNOWN INDICATION
     Dosage: UNK
     Route: 065
  5. BISOPROLOL FUMARATE [Concomitant]
     Indication: PRODUCT USED FOR UNKNOWN INDICATION
     Dosage: UNK
     Route: 065
  6. FERROUS SULFATE TAB [Concomitant]
     Indication: PRODUCT USED FOR UNKNOWN INDICATION
     Dosage: UNK
     Route: 065
  7. LANSOPRAZOLE [Concomitant]
     Indication: PRODUCT USED FOR UNKNOWN INDICATION
     Dosage: UNK
     Route: 065
  8. NICORANDIL [Concomitant]
     Indication: PRODUCT USED FOR UNKNOWN INDICATION
     Dosage: UNK
     Route: 065
  9. CIPROFLOXACIN [Suspect]
     Indication: PRODUCT USED FOR UNKNOWN INDICATION
     Dosage: 750 MG, BID
     Route: 048
     Dates: start: 20120110, end: 20120211
  10. MAGNESIUM L-ASPARTATE HYDROCHLORIDE [Suspect]
     Indication: HYPOMAGNESAEMIA
     Dosage: 10 MMOL, QD
     Route: 048
     Dates: start: 20120113, end: 20120209
  11. ASPIRIN [Concomitant]
     Indication: PRODUCT USED FOR UNKNOWN INDICATION
     Dosage: UNK
     Route: 065
  12. FUROSEMIDE [Concomitant]
     Indication: PRODUCT USED FOR UNKNOWN INDICATION
     Dosage: UNK
     Route: 065
  13. PIPERACILLIN AND TAZOBACTAM [Suspect]
     Indication: PRODUCT USED FOR UNKNOWN INDICATION
     Dosage: UNK
     Route: 041
     Dates: start: 20120221, end: 20120222
  14. TEICOPLANIN [Concomitant]
     Indication: PRODUCT USED FOR UNKNOWN INDICATION
     Dosage: 800 MG, QD
     Route: 041
     Dates: start: 20120109, end: 20120110

REACTIONS (6)
  - PRODUCT CONTAMINATION MICROBIAL [None]
  - RASH MACULO-PAPULAR [None]
  - PARAESTHESIA [None]
  - PRURITUS [None]
  - SKIN WARM [None]
  - RASH ERYTHEMATOUS [None]
